FAERS Safety Report 5952966-6 (Version None)
Quarter: 2008Q4

REPORT INFORMATION
  Report Type: 
  Country: None (occurrence: None)
  Receive Date: 20081114
  Receipt Date: 20081104
  Transmission Date: 20090506
  Serious: Yes (Hospitalization)
  Sender: FDA-Public Use
  Company Number: JP-ELI_LILLY_AND_COMPANY-JP200811002792

PATIENT
  Sex: Female

DRUGS (2)
  1. HUMAN INSULIN (RDNA) UNK MANU [Suspect]
     Indication: DIABETES MELLITUS
  2. INSULIN [Concomitant]
     Indication: DIABETES MELLITUS
     Route: 064
     Dates: start: 20060801, end: 20070201

REACTIONS (3)
  - DRUG EXPOSURE DURING PREGNANCY [None]
  - HYPERBILIRUBINAEMIA NEONATAL [None]
  - SMALL FOR DATES BABY [None]
